FAERS Safety Report 19434813 (Version 1)
Quarter: 2021Q2

REPORT INFORMATION
  Report Type: Spontaneous
  Country: US (occurrence: US)
  Receive Date: 20210617
  Receipt Date: 20210617
  Transmission Date: 20210717
  Serious: No
  Sender: FDA-Public Use
  Company Number: US-ROCHE-2645708

PATIENT
  Age: 80 Year

DRUGS (10)
  1. PRAVASTATIN. [Concomitant]
     Active Substance: PRAVASTATIN
     Route: 048
  2. LEVOTHYROXINE. [Concomitant]
     Active Substance: LEVOTHYROXINE
     Dosage: 100 MCG
     Route: 048
  3. ZYRTEC (UNITED STATES) [Concomitant]
     Route: 048
     Dates: start: 20200714
  4. ACTEMRA [Suspect]
     Active Substance: TOCILIZUMAB
  5. PREDNISONE. [Concomitant]
     Active Substance: PREDNISONE
     Route: 048
     Dates: start: 2020
  6. ZYRTEC (UNITED STATES) [Concomitant]
     Route: 048
  7. VENLAFAXINE [Concomitant]
     Active Substance: VENLAFAXINE HYDROCHLORIDE
     Route: 048
  8. ASPIRIN 81 [Concomitant]
     Active Substance: ASPIRIN
     Route: 048
     Dates: end: 20200715
  9. ACTEMRA [Suspect]
     Active Substance: TOCILIZUMAB
     Indication: GIANT CELL ARTERITIS
     Dosage: ONGOING: YES
     Route: 058
     Dates: start: 20200703
  10. PREDNISONE. [Concomitant]
     Active Substance: PREDNISONE
     Route: 048

REACTIONS (3)
  - Urticaria [Not Recovered/Not Resolved]
  - Device operational issue [Unknown]
  - Rash [Not Recovered/Not Resolved]

NARRATIVE: CASE EVENT DATE: 20200712
